FAERS Safety Report 9328863 (Version 1)
Quarter: 2013Q2

REPORT INFORMATION
  Report Type: Spontaneous
  Country: MX (occurrence: MX)
  Receive Date: 20130604
  Receipt Date: 20130604
  Transmission Date: 20140414
  Serious: Yes (Death, Hospitalization)
  Sender: FDA-Public Use
  Company Number: MX-BRISTOL-MYERS SQUIBB COMPANY-18964361

PATIENT
  Age: 58 Year
  Sex: Female

DRUGS (2)
  1. COAPROVEL TABS 150MG/12.5MG [Suspect]
     Indication: HYPERTENSION
     Dosage: 1 DF:1 1/2 TAB
     Route: 048
     Dates: start: 2007, end: 20120412
  2. EUTIROX [Suspect]
     Indication: HYPERTHYROIDISM
     Dosage: 1DF:1TAB
     Route: 048

REACTIONS (2)
  - Pleural effusion [Fatal]
  - Medication error [Unknown]
